FAERS Safety Report 8962179 (Version 1)
Quarter: 2012Q4

REPORT INFORMATION
  Report Type: 
  Country: FR (occurrence: FR)
  Receive Date: 20121212
  Receipt Date: 20121212
  Transmission Date: 20130627
  Serious: Yes (Hospitalization)
  Sender: FDA-Public Use
  Company Number: FR-ELI_LILLY_AND_COMPANY-FR201211009377

PATIENT
  Sex: Female

DRUGS (8)
  1. BYETTA [Suspect]
     Dosage: 5 ug, bid
     Route: 058
     Dates: end: 201208
  2. KEPPRA [Concomitant]
     Dosage: 500 mg, bid
     Dates: start: 20120609
  3. XELEVIA [Concomitant]
     Dosage: UNK
     Dates: end: 201208
  4. METFORMIN [Concomitant]
     Dosage: 850 mg, tid
     Dates: end: 201208
  5. HEMI-DAONIL [Concomitant]
  6. AMLOR [Concomitant]
  7. EXELON [Concomitant]
  8. TAHOR [Concomitant]

REACTIONS (2)
  - Hypoglycaemia [Recovered/Resolved]
  - Abnormal behaviour [Recovered/Resolved]
